FAERS Safety Report 10396423 (Version 1)
Quarter: 2014Q1

REPORT INFORMATION
  Report Type: Spontaneous
  Country: US (occurrence: None)
  Receive Date: 20130815
  Receipt Date: 20130815
  Transmission Date: 20141002
  Serious: Yes (Other)
  Sender: FDA-Public Use
  Company Number: ADR-2013-00688

PATIENT
  Age: 33 Year
  Sex: Female

DRUGS (6)
  1. LIORESAL INTRATHECAL (BACLOFEN INJECTION) 500 MCG/ML [Suspect]
     Indication: MUSCLE SPASTICITY
  2. EFFEXOR [Concomitant]
  3. NEXIUM [Concomitant]
  4. MULTIVITAMIN [Concomitant]
  5. VITAMIN D [Concomitant]
  6. METHENAMINE [Concomitant]

REACTIONS (2)
  - Drug withdrawal syndrome [None]
  - Muscle spasticity [None]
